FAERS Safety Report 12269428 (Version 3)
Quarter: 2016Q3

REPORT INFORMATION
  Report Type: Report from Study
  Country: BR (occurrence: BR)
  Receive Date: 20160414
  Receipt Date: 20160830
  Transmission Date: 20161109
  Serious: Yes (Hospitalization, Other)
  Sender: FDA-Public Use
  Company Number: PHHY2016BR049483

PATIENT
  Sex: Female
  Weight: 38.4 kg

DRUGS (2)
  1. EXJADE [Suspect]
     Active Substance: DEFERASIROX
     Indication: SICKLE CELL ANAEMIA
     Dosage: 500 MG, UNK
     Route: 065
     Dates: start: 20151026, end: 201604
  2. VARFARINA [Concomitant]
     Indication: PRODUCT USED FOR UNKNOWN INDICATION
     Dosage: UNK
     Route: 065

REACTIONS (8)
  - Cerebrovascular accident [Recovered/Resolved]
  - Seizure [Recovered/Resolved]
  - Hypersensitivity [Unknown]
  - Pneumonia [Recovered/Resolved]
  - Poisoning [Recovered/Resolved]
  - Endocarditis [Recovered/Resolved]
  - Chest pain [Unknown]
  - Pulmonary oedema [Recovered/Resolved]
